FAERS Safety Report 8571883-9 (Version None)
Quarter: 2012Q2

REPORT INFORMATION
  Report Type: 
  Country: None (occurrence: None)
  Receive Date: 20120418
  Receipt Date: 20091116
  Transmission Date: 20120825
  Serious: Yes (Other)
  Sender: FDA-Public Use
  Company Number: PHEH2009US16140

PATIENT
  Age: 58 Year
  Sex: Male

DRUGS (1)
  1. DIOVAN HCT [Suspect]
     Indication: HYPERTENSION
     Dosage: 160/25 MG, QD, ORAL
     Route: 048
     Dates: start: 20091013, end: 20091110

REACTIONS (1)
  - BLOOD CREATININE INCREASED [None]
